FAERS Safety Report 16019838 (Version 2)
Quarter: 2019Q2

REPORT INFORMATION
  Report Type: Report from Study
  Country: US (occurrence: US)
  Receive Date: 20190228
  Receipt Date: 20190401
  Transmission Date: 20190711
  Serious: Yes (Life-Threatening, Hospitalization)
  Sender: FDA-Public Use
  Company Number: US-TEVA-2019-US-1018754

PATIENT
  Age: 62 Year
  Sex: Male
  Weight: 94.3 kg

DRUGS (8)
  1. ENOXAPARIN [Concomitant]
     Active Substance: ENOXAPARIN
     Indication: DEEP VEIN THROMBOSIS
     Dosage: 180 MILLIGRAM DAILY;
     Route: 058
     Dates: start: 20190115, end: 20190126
  2. CYTARABINE. [Suspect]
     Active Substance: CYTARABINE
     Indication: ACUTE MYELOID LEUKAEMIA
     Dosage: 225 MILLIGRAM DAILY; 225 MG, DAILY BY CONTINUOUS INFUSION
     Route: 041
     Dates: start: 20181217, end: 20181223
  3. ACYCLOVIR. [Concomitant]
     Active Substance: ACYCLOVIR
     Indication: ANTIVIRAL PROPHYLAXIS
     Dosage: 800 MILLIGRAM DAILY;
     Dates: start: 20181126
  4. FLUCONAZOLE. [Concomitant]
     Active Substance: FLUCONAZOLE
     Indication: ANTIVIRAL PROPHYLAXIS
     Dosage: 400 MILLIGRAM DAILY;
     Route: 048
     Dates: start: 20190110
  5. INTRATHECAL METHOTREXATE [Concomitant]
     Dosage: 12MG GIVEN ONE TIME
     Route: 037
     Dates: start: 20190114, end: 20190114
  6. DAUNORUBICIN [Suspect]
     Active Substance: DAUNORUBICIN
     Indication: ACUTE MYELOID LEUKAEMIA
     Dosage: DAILY BY CONTINUOUS INFUSION
     Route: 041
     Dates: start: 20181217, end: 20181219
  7. LEVOFLOXACIN. [Concomitant]
     Active Substance: LEVOFLOXACIN
     Indication: ANTIBIOTIC PROPHYLAXIS
     Dosage: 750 MILLIGRAM DAILY;
     Dates: start: 20190117, end: 20190126
  8. MEROPENEM. [Concomitant]
     Active Substance: MEROPENEM
     Indication: ANTIBIOTIC PROPHYLAXIS
     Dosage: 3 GRAM DAILY;
     Route: 042
     Dates: start: 20181218, end: 20190116

REACTIONS (2)
  - Febrile neutropenia [Recovered/Resolved]
  - Lung infection [Recovered/Resolved]

NARRATIVE: CASE EVENT DATE: 20190127
